FAERS Safety Report 7594597-0 (Version None)
Quarter: 2011Q3

REPORT INFORMATION
  Report Type: 
  Country: None (occurrence: None)
  Receive Date: 20110707
  Receipt Date: 20110629
  Transmission Date: 20111222
  Serious: Yes (Life-Threatening, Hospitalization)
  Sender: FDA-Public Use
  Company Number: US-CELGENEUS-163-21880-11043438

PATIENT
  Sex: Male
  Weight: 177.51 kg

DRUGS (16)
  1. ACYCLOVIR [Concomitant]
     Route: 065
  2. REVLIMID [Suspect]
     Dosage: 25 MILLIGRAM
     Route: 048
     Dates: start: 20110404
  3. ASPIRIN [Concomitant]
     Dosage: 81 MILLIGRAM
     Route: 048
  4. GEMFIBROZIL [Concomitant]
     Dosage: 600 MILLIGRAM
     Route: 048
  5. VICODIN [Concomitant]
     Indication: PAIN
     Dosage: 5MG-500MG, 2 TABLETS
     Route: 048
  6. REVLIMID [Suspect]
     Indication: MULTIPLE MYELOMA
     Dosage: 25 MILLIGRAM
     Route: 048
     Dates: start: 20110314, end: 20110317
  7. FISH OIL [Concomitant]
     Dosage: 1200 MILLIGRAM
     Route: 048
  8. METFORMIN HCL [Concomitant]
     Dosage: 1000 MILLIGRAM
     Route: 048
  9. ACETAMINOPHEN [Concomitant]
     Route: 065
  10. ASPIRIN [Concomitant]
     Dosage: 325 MILLIGRAM
     Route: 048
  11. OXYCONTIN [Concomitant]
     Indication: PAIN
     Dosage: 10 MILLIGRAM
     Route: 048
  12. GLIPIZIDE [Concomitant]
     Dosage: 10 MILLIGRAM
     Route: 048
  13. FUROSEMIDE [Concomitant]
     Route: 065
  14. MIRALAX [Concomitant]
     Dosage: 17 GRAM
     Route: 048
  15. PLAVIX [Concomitant]
     Route: 065
  16. NITROSTAT [Concomitant]
     Route: 065

REACTIONS (1)
  - ACUTE MYOCARDIAL INFARCTION [None]
